FAERS Safety Report 7376610-9 (Version None)
Quarter: 2011Q1

REPORT INFORMATION
  Report Type: 
  Country: None (occurrence: None)
  Receive Date: 20110325
  Receipt Date: 20110316
  Transmission Date: 20110831
  Serious: Yes (Other)
  Sender: FDA-Public Use
  Company Number: GB-GENENTECH-313705

PATIENT
  Age: 80 Year
  Sex: Male

DRUGS (4)
  1. PREDNISOLONE [Concomitant]
     Indication: RHEUMATOID ARTHRITIS
     Dosage: UNK
     Route: 048
  2. RITUXIMAB [Suspect]
     Indication: RHEUMATOID ARTHRITIS
     Dosage: UNK
     Route: 065
     Dates: start: 20100326, end: 20101210
  3. ADCAL-D3 [Concomitant]
     Indication: PROPHYLAXIS
     Dosage: UNK
     Route: 048
  4. FRUSEMIDE [Concomitant]
     Indication: MYOCARDIAL ISCHAEMIA

REACTIONS (1)
  - CARDIAC FAILURE [None]
